FAERS Safety Report 5695715-1 (Version None)
Quarter: 2008Q2

REPORT INFORMATION
  Report Type: 
  Country: None (occurrence: None)
  Receive Date: 20080403
  Receipt Date: 20080320
  Transmission Date: 20081010
  Serious: Yes (Death)
  Sender: FDA-Public Use
  Company Number: E3810-01721-SOL-US

PATIENT
  Age: 79 Year
  Sex: Female

DRUGS (2)
  1. ACIPHEX [Suspect]
     Indication: GASTROOESOPHAGEAL REFLUX DISEASE
     Dosage: 20 MG,   ORAL
     Route: 048
  2. GLUCOPHAGE [Concomitant]

REACTIONS (1)
  - ONCOLOGIC COMPLICATION [None]
